FAERS Safety Report 9500088 (Version 4)
Quarter: 2014Q3

REPORT INFORMATION
  Report Type: Spontaneous
  Country: JP (occurrence: JP)
  Receive Date: 20130905
  Receipt Date: 20140707
  Transmission Date: 20150326
  Serious: Yes (Hospitalization, Other)
  Sender: FDA-Public Use
  Company Number: PHHY2013JP094941

PATIENT
  Age: 65 Year
  Sex: Female

DRUGS (5)
  1. EPOGIN [Concomitant]
     Route: 058
     Dates: start: 20120319
  2. TASIGNA [Suspect]
     Active Substance: NILOTINIB
     Indication: CHRONIC MYELOID LEUKAEMIA
     Dosage: 300 MG, DAILY
     Route: 048
     Dates: start: 20120220, end: 20130105
  3. PARIET [Concomitant]
     Active Substance: RABEPRAZOLE SODIUM
     Indication: PROPHYLAXIS
     Dosage: 10 MG, UNK
     Route: 048
     Dates: start: 20050426
  4. TASIGNA [Suspect]
     Active Substance: NILOTINIB
     Dosage: 150 MG, DAILY
     Route: 048
     Dates: start: 20130304
  5. OLMETEC [Concomitant]
     Active Substance: OLMESARTAN MEDOXOMIL
     Dosage: 10 MG, UNK
     Route: 048
     Dates: start: 20050426

REACTIONS (7)
  - Cardiac failure [Recovered/Resolved]
  - Pleural effusion [Recovering/Resolving]
  - Nephrogenic anaemia [Unknown]
  - Face oedema [Recovered/Resolved]
  - Renal failure chronic [Unknown]
  - Oedema peripheral [Recovered/Resolved]
  - Dyspnoea [Recovered/Resolved]

NARRATIVE: CASE EVENT DATE: 201301
